FAERS Safety Report 9277400 (Version 1)
Quarter: 2013Q2

REPORT INFORMATION
  Report Type: Spontaneous
  Country: US (occurrence: US)
  Receive Date: 20130508
  Receipt Date: 20130508
  Transmission Date: 20140414
  Serious: Yes (Death)
  Sender: FDA-Public Use
  Company Number: US-BAYER-2013-057224

PATIENT
  Age: 43 Year
  Sex: Female
  Weight: 101.13 kg

DRUGS (8)
  1. OCELLA [Suspect]
     Dosage: UNK
  2. YASMIN [Suspect]
  3. ALTACE [Concomitant]
     Indication: HYPERTENSION
  4. AVALIDE [Concomitant]
  5. BACTRIM [Concomitant]
  6. FLAGYL [Concomitant]
  7. SIMVASTATIN [Concomitant]
     Indication: HYPERLIPIDAEMIA
  8. SYNTHROID [Concomitant]
     Indication: THYROID DISORDER

REACTIONS (2)
  - Pulmonary embolism [Fatal]
  - Deep vein thrombosis [Fatal]
